FAERS Safety Report 24964426 (Version 1)
Quarter: 2025Q1

REPORT INFORMATION
  Report Type: Spontaneous
  Country: FR (occurrence: FR)
  Receive Date: 20250213
  Receipt Date: 20250213
  Transmission Date: 20250409
  Serious: Yes (Other)
  Sender: RANBAXY
  Company Number: FR-SUN PHARMACEUTICAL INDUSTRIES LTD-2025RR-494028

PATIENT
  Sex: Male
  Weight: 2.45 kg

DRUGS (2)
  1. VENLAFAXINE [Suspect]
     Active Substance: VENLAFAXINE HYDROCHLORIDE
     Indication: Depression
     Dosage: 225 MILLIGRAM, DAILY
     Route: 064
     Dates: end: 20240718
  2. CYAMEMAZINE [Suspect]
     Active Substance: CYAMEMAZINE
     Indication: Depression
     Dosage: 10 MILLIGRAM, DAILY
     Route: 064
     Dates: end: 20240718

REACTIONS (7)
  - Neonatal respiratory distress [Recovered/Resolved]
  - Tachycardia [Recovered/Resolved]
  - Hypotonia [Recovered/Resolved]
  - Hypoglycaemia [Recovered/Resolved]
  - Tremor [Recovered/Resolved]
  - Premature baby [Recovered/Resolved]
  - Maternal exposure during pregnancy [Recovered/Resolved]

NARRATIVE: CASE EVENT DATE: 20240718
